FAERS Safety Report 7911647-X (Version None)
Quarter: 2011Q4

REPORT INFORMATION
  Report Type: 
  Country: None (occurrence: None)
  Receive Date: 20111114
  Receipt Date: 20111114
  Transmission Date: 20120403
  Serious: No
  Sender: FDA-Public Use
  Company Number: None

PATIENT
  Age: 69 Year
  Sex: Female

DRUGS (1)
  1. TARCEVA [Suspect]
     Indication: LUNG NEOPLASM MALIGNANT
     Dosage: NOT PROVIDED

REACTIONS (5)
  - RASH [None]
  - DRY THROAT [None]
  - DRY MOUTH [None]
  - ONYCHOMADESIS [None]
  - SKIN EXFOLIATION [None]
